FAERS Safety Report 21933994 (Version 1)
Quarter: 2023Q1

REPORT INFORMATION
  Report Type: Spontaneous
  Country: GB (occurrence: GB)
  Receive Date: 20230201
  Receipt Date: 20230201
  Transmission Date: 20230418
  Serious: Yes (Hospitalization)
  Sender: FDA-Public Use
  Company Number: None

PATIENT
  Age: 67 Year
  Sex: Female

DRUGS (5)
  1. OMEPRAZOLE [Suspect]
     Active Substance: OMEPRAZOLE
     Dosage: 20MG GASTRO-RESISTANT CAPSULES ONE TO BE TAKEN TWICE A DAY
  2. ASPIRIN [Concomitant]
     Active Substance: ASPIRIN
     Dosage: 75MG DISPERSIBLE TABLETS TAKE ONE DAILY
  3. BISOPROLOL [Concomitant]
     Active Substance: BISOPROLOL
     Dosage: 1.25MG TABLETS ONE TO BE TAKEN EACH DAY
  4. SERTRALINE [Concomitant]
     Active Substance: SERTRALINE HYDROCHLORIDE
     Dosage: 50MG TABLETS ONE TO BE TAKEN EACH DAY
  5. CHOLECALCIFEROL [Concomitant]
     Active Substance: CHOLECALCIFEROL
     Dosage: FULTIUM-D3 20,000UNIT CAPSULES TAKE ONE CAPSULE EVERY MONTH

REACTIONS (1)
  - Hypomagnesaemia [Recovered/Resolved]
